FAERS Safety Report 24665782 (Version 1)
Quarter: 2024Q4

REPORT INFORMATION
  Report Type: Spontaneous
  Country: US (occurrence: US)
  Receive Date: 20241126
  Receipt Date: 20241126
  Transmission Date: 20250115
  Serious: Yes (Other)
  Sender: ORGANON
  Company Number: US-ORGANON-O2410USA000201

PATIENT
  Age: 71 Year
  Sex: Female

DRUGS (3)
  1. DULERA [Suspect]
     Active Substance: FORMOTEROL FUMARATE DIHYDRATE\MOMETASONE FUROATE
     Dosage: UNK
  2. DULERA [Suspect]
     Active Substance: FORMOTEROL FUMARATE DIHYDRATE\MOMETASONE FUROATE
     Dosage: ONE INHALATION EVERY 6 HOURS
     Dates: start: 20240901, end: 20240928
  3. DULERA [Suspect]
     Active Substance: FORMOTEROL FUMARATE DIHYDRATE\MOMETASONE FUROATE
     Indication: Asthma
     Dosage: 1 DOSAGE FORM, Q6H (ONE INHALATION EVERY 6 HOURS)
     Dates: start: 20240929

REACTIONS (11)
  - Foreign body in throat [Recovered/Resolved]
  - Device malfunction [Unknown]
  - Poor quality device used [Unknown]
  - Device difficult to use [Unknown]
  - Product quality issue [Unknown]
  - Device malfunction [Unknown]
  - Poor quality device used [Unknown]
  - Device difficult to use [Unknown]
  - Product quality issue [Unknown]
  - Intentional product misuse [Unknown]
  - Device use issue [Unknown]

NARRATIVE: CASE EVENT DATE: 20240901
